FAERS Safety Report 9863504 (Version 11)
Quarter: 2014Q3

REPORT INFORMATION
  Report Type: Spontaneous
  Country: US (occurrence: US)
  Receive Date: 20140203
  Receipt Date: 20140924
  Transmission Date: 20150326
  Serious: Yes (Life-Threatening, Hospitalization, Disabling, Other)
  Sender: FDA-Public Use
  Company Number: US-ELI_LILLY_AND_COMPANY-US201311005701

PATIENT
  Age: 42 Year
  Sex: Male

DRUGS (12)
  1. INSULIN HUMAN [Suspect]
     Active Substance: INSULIN HUMAN
     Indication: DIABETES MELLITUS
     Dosage: UNK
     Route: 065
     Dates: start: 201211
  2. AMOXCLAV [Concomitant]
     Dosage: 875 MG, UNK
     Route: 048
  3. LEVEMIR [Concomitant]
     Active Substance: INSULIN DETEMIR
  4. NOVOLOG [Concomitant]
     Active Substance: INSULIN ASPART
  5. GABAPENTIN. [Concomitant]
     Active Substance: GABAPENTIN
  6. ZYPREXA [Concomitant]
     Active Substance: OLANZAPINE
     Dosage: 10 MG, BID
  7. ZYPREXA [Concomitant]
     Active Substance: OLANZAPINE
     Dosage: 20 MG, EACH EVENING
  8. HYDROCODONE BIT/APAP [Concomitant]
     Active Substance: ACETAMINOPHEN\HYDROCODONE BITARTRATE
     Dosage: 1 DF, UNK
     Route: 048
  9. CLONIDINE. [Concomitant]
     Active Substance: CLONIDINE
  10. INSULIN HUMAN [Suspect]
     Active Substance: INSULIN HUMAN
     Indication: DIABETES MELLITUS
     Route: 065
  11. CLOMIPRAMINE [Concomitant]
     Active Substance: CLOMIPRAMINE
     Dosage: 100 MG, QD
     Route: 048
  12. RISPERDAL [Concomitant]
     Active Substance: RISPERIDONE

REACTIONS (41)
  - Hypoglycaemic coma [Recovered/Resolved with Sequelae]
  - Diabetes mellitus inadequate control [Unknown]
  - Aggression [Unknown]
  - Balance disorder [Unknown]
  - Renal failure acute [Unknown]
  - Migraine with aura [Unknown]
  - Hypoxic-ischaemic encephalopathy [Unknown]
  - Product name confusion [Recovered/Resolved with Sequelae]
  - Agitation [Unknown]
  - Depression [Unknown]
  - Dysarthria [Unknown]
  - Chest pain [Unknown]
  - Skin abrasion [Recovered/Resolved]
  - Weight increased [Unknown]
  - Cognitive disorder [Unknown]
  - Fine motor delay [Recovering/Resolving]
  - Crying [Unknown]
  - Insomnia [Unknown]
  - Fear [Unknown]
  - Disturbance in attention [Unknown]
  - Nervousness [Unknown]
  - Renal failure chronic [Not Recovered/Not Resolved]
  - Abnormal behaviour [Unknown]
  - Paranoia [Unknown]
  - Mental impairment [Unknown]
  - Nephritis [Unknown]
  - Wrong drug administered [Recovered/Resolved with Sequelae]
  - Dysphagia [Recovered/Resolved]
  - Brain injury [Not Recovered/Not Resolved]
  - Diabetic ketoacidosis [Recovering/Resolving]
  - Disorientation [Unknown]
  - Increased appetite [Not Recovered/Not Resolved]
  - Convulsion [Recovered/Resolved]
  - Anxiety [Unknown]
  - Mobility decreased [Recovering/Resolving]
  - Restlessness [Unknown]
  - Delirium [Recovered/Resolved]
  - Fatigue [Unknown]
  - Amnesia [Unknown]
  - Injection site nodule [Unknown]
  - Psychotic disorder [Recovered/Resolved]

NARRATIVE: CASE EVENT DATE: 2012
